FAERS Safety Report 14728490 (Version 3)
Quarter: 2019Q2

REPORT INFORMATION
  Report Type: Spontaneous
  Country: US (occurrence: US)
  Receive Date: 20180406
  Receipt Date: 20190410
  Transmission Date: 20190711
  Serious: Yes (Other)
  Sender: FDA-Public Use
  Company Number: US-ASTRAZENECA-2018SE40875

PATIENT
  Age: 24100 Day
  Sex: Female
  Weight: 55.3 kg

DRUGS (58)
  1. NEXIUM [Suspect]
     Active Substance: ESOMEPRAZOLE MAGNESIUM
     Indication: FLATULENCE
     Route: 048
     Dates: start: 20061102
  2. NEXIUM 24HR [Suspect]
     Active Substance: ESOMEPRAZOLE MAGNESIUM
     Route: 048
     Dates: start: 2006, end: 2016
  3. PRILOSEC [Suspect]
     Active Substance: OMEPRAZOLE MAGNESIUM
     Indication: GASTROOESOPHAGEAL REFLUX DISEASE
     Route: 048
     Dates: start: 2006
  4. AZITHROMYCIN ANHYDROUS. [Concomitant]
     Active Substance: AZITHROMYCIN ANHYDROUS
     Dosage: TAKE 2 TABLETS BY MOUTH ON THE FIRST DAY, THEN 1 TABLET DAILY FOR 4 DAYS
     Route: 048
     Dates: start: 20160121
  5. VITAMIN D2 [Concomitant]
     Active Substance: ERGOCALCIFEROL
     Dosage: 50,000 IU, TAKE 1 CAPSULE BY MOUTH ONCE A WEEK
     Route: 048
     Dates: start: 20160701
  6. VITAMIN D2 [Concomitant]
     Active Substance: ERGOCALCIFEROL
     Dosage: 50,000 IU D2 (ERGO) CAPS, TK 1 C PO Q MONTH FOR 1 YEAR
     Route: 048
     Dates: start: 20111231
  7. DILTIAZEM. [Concomitant]
     Active Substance: DILTIAZEM
  8. CIPROFLOX [Concomitant]
     Active Substance: CIPROFLOXACIN HYDROCHLORIDE
  9. NEXIUM [Suspect]
     Active Substance: ESOMEPRAZOLE MAGNESIUM
     Indication: FLATULENCE
     Route: 048
     Dates: start: 2006, end: 2016
  10. PRILOSEC OTC [Suspect]
     Active Substance: OMEPRAZOLE MAGNESIUM
  11. PIOGLITAZONE. [Concomitant]
     Active Substance: PIOGLITAZONE
     Dosage: ONCE A DAY
     Route: 048
     Dates: start: 20150218
  12. GLYBURIDE. [Concomitant]
     Active Substance: GLYBURIDE
     Route: 048
     Dates: start: 20120510
  13. NABUMETONE. [Concomitant]
     Active Substance: NABUMETONE
     Route: 048
     Dates: start: 20070328
  14. LOSARTAN. [Concomitant]
     Active Substance: LOSARTAN
  15. BENAZEPRIL [Concomitant]
     Active Substance: BENAZEPRIL HYDROCHLORIDE
  16. DIPHENHYDRAMINE. [Concomitant]
     Active Substance: DIPHENHYDRAMINE
  17. NEXIUM [Suspect]
     Active Substance: ESOMEPRAZOLE MAGNESIUM
     Indication: FLATULENCE
     Route: 048
     Dates: start: 2006, end: 2016
  18. PRILOSEC [Suspect]
     Active Substance: OMEPRAZOLE MAGNESIUM
     Indication: GASTROOESOPHAGEAL REFLUX DISEASE
     Route: 048
     Dates: start: 2006
  19. GUAIFENESIN. [Concomitant]
     Active Substance: GUAIFENESIN
     Indication: NASAL CONGESTION
     Dates: start: 2018
  20. LISINOPRIL. [Concomitant]
     Active Substance: LISINOPRIL
     Route: 048
     Dates: start: 20120510
  21. PRAVASTATIN. [Concomitant]
     Active Substance: PRAVASTATIN
     Route: 048
     Dates: start: 20130123
  22. TRIAMTERENE AND HYDROCHLOROTHIAZIDE [Concomitant]
     Active Substance: HYDROCHLOROTHIAZIDE\TRIAMTERENE
     Route: 048
     Dates: start: 20130802
  23. JANUVIA [Concomitant]
     Active Substance: SITAGLIPTIN PHOSPHATE
     Dosage: ONCE A DAY POR 30 DAYS
     Route: 048
     Dates: start: 20150114
  24. GABAPENTIN. [Concomitant]
     Active Substance: GABAPENTIN
     Route: 048
     Dates: start: 20090205
  25. HYDROCORTISONE. [Concomitant]
     Active Substance: HYDROCORTISONE
  26. HYDRALAZINE [Concomitant]
     Active Substance: HYDRALAZINE HYDROCHLORIDE
  27. PRILOSEC [Suspect]
     Active Substance: OMEPRAZOLE MAGNESIUM
     Indication: GASTROOESOPHAGEAL REFLUX DISEASE
     Route: 048
     Dates: start: 2006, end: 2010
  28. PRILOSEC [Suspect]
     Active Substance: OMEPRAZOLE MAGNESIUM
     Indication: GASTROOESOPHAGEAL REFLUX DISEASE
     Route: 048
     Dates: start: 20060117
  29. BYETTA [Concomitant]
     Active Substance: EXENATIDE
     Dosage: 5MCG PEN (250MCG/ML 1.2ML), INJ 5 MCG SC BID BEFORE BREAKFAST AND EVENING MEAL
     Route: 058
     Dates: start: 20150218
  30. SIMVASTATIN. [Concomitant]
     Active Substance: SIMVASTATIN
     Route: 048
     Dates: start: 20090121
  31. GLIPIZIDE. [Concomitant]
     Active Substance: GLIPIZIDE
  32. TRIAMTERENE. [Concomitant]
     Active Substance: TRIAMTERENE
  33. ASPIRIN. [Concomitant]
     Active Substance: ASPIRIN
     Indication: CARDIOVASCULAR EVENT PROPHYLAXIS
     Route: 048
     Dates: start: 20120127
  34. AMLODIPINE BESYLATE. [Concomitant]
     Active Substance: AMLODIPINE BESYLATE
     Route: 048
     Dates: start: 20140617
  35. SIMVASTATIN. [Concomitant]
     Active Substance: SIMVASTATIN
     Dosage: PO QHS
     Route: 048
     Dates: start: 20130606
  36. ATENOLOL. [Concomitant]
     Active Substance: ATENOLOL
     Route: 048
     Dates: start: 20120308
  37. TYLENOL [Concomitant]
     Active Substance: ACETAMINOPHEN
     Indication: PAIN
  38. CLONIDINE. [Concomitant]
     Active Substance: CLONIDINE
     Route: 048
     Dates: start: 20060702
  39. METFORMIN [Concomitant]
     Active Substance: METFORMIN HYDROCHLORIDE
     Route: 048
     Dates: start: 20070103
  40. FLUTICASONE. [Concomitant]
     Active Substance: FLUTICASONE
     Dosage: NAS SP, SPRAY ONCE IN EACH NOSTRIL EVERY MORNING
     Dates: start: 20070517
  41. POTASSIUM CHLORIDE. [Concomitant]
     Active Substance: POTASSIUM CHLORIDE
     Route: 048
     Dates: start: 20160629
  42. ZOLPIDEM [Concomitant]
     Active Substance: ZOLPIDEM\ZOLPIDEM TARTRATE
     Route: 048
     Dates: start: 20160917
  43. FUROSEMIDE. [Concomitant]
     Active Substance: FUROSEMIDE
     Route: 048
     Dates: start: 20050927
  44. SERTRALINE [Concomitant]
     Active Substance: SERTRALINE HYDROCHLORIDE
     Route: 048
     Dates: start: 20060831
  45. PRILOSEC [Suspect]
     Active Substance: OMEPRAZOLE MAGNESIUM
     Indication: GASTROOESOPHAGEAL REFLUX DISEASE
     Route: 048
     Dates: start: 2006, end: 2010
  46. GUAIFENESIN. [Concomitant]
     Active Substance: GUAIFENESIN
     Indication: NASAL CONGESTION
     Dates: start: 20180218
  47. CLONIDINE. [Concomitant]
     Active Substance: CLONIDINE
     Route: 048
     Dates: start: 20120301
  48. METFORMIN [Concomitant]
     Active Substance: METFORMIN HYDROCHLORIDE
     Route: 048
     Dates: start: 20130912
  49. LOSARTAN/HCTZ [Concomitant]
     Active Substance: HYDROCHLOROTHIAZIDE\LOSARTAN
     Route: 048
     Dates: start: 20150612
  50. IBUPROFEN. [Concomitant]
     Active Substance: IBUPROFEN
     Route: 048
     Dates: start: 20131121
  51. LANTUS [Concomitant]
     Active Substance: INSULIN GLARGINE
     Dosage: U-100 INSULIN 10ML, INJECT 10 UNITS UNDER THE SKIP ONCE A DAY
     Dates: start: 20131124
  52. DOXAZOSIN [Concomitant]
     Active Substance: DOXAZOSIN\DOXAZOSIN MESYLATE
     Route: 048
     Dates: start: 20070517
  53. GLIMEPIRIDE. [Concomitant]
     Active Substance: GLIMEPIRIDE
  54. PRILOSEC [Suspect]
     Active Substance: OMEPRAZOLE MAGNESIUM
     Indication: GASTROOESOPHAGEAL REFLUX DISEASE
     Route: 048
     Dates: start: 20060117
  55. CLONIDINE. [Concomitant]
     Active Substance: CLONIDINE
     Route: 048
     Dates: start: 20141113
  56. POTASSIUM CHLORIDE. [Concomitant]
     Active Substance: POTASSIUM CHLORIDE
     Route: 048
     Dates: start: 20060508
  57. CEPHALEXIN. [Concomitant]
     Active Substance: CEPHALEXIN
     Dosage: TAKE ONE CAPSULE BY MOUTH THREE TIMES DAILY FOR 10
     Route: 048
     Dates: start: 20160917
  58. SINGULAIR [Concomitant]
     Active Substance: MONTELUKAST SODIUM
     Route: 048
     Dates: start: 20050915

REACTIONS (1)
  - Chronic kidney disease [Not Recovered/Not Resolved]

NARRATIVE: CASE EVENT DATE: 20160624
